FAERS Safety Report 9790535 (Version 3)
Quarter: 2014Q1

REPORT INFORMATION
  Report Type: Report from Study
  Country: JP (occurrence: JP)
  Receive Date: 20131231
  Receipt Date: 20140127
  Transmission Date: 20141002
  Serious: Yes (Hospitalization)
  Sender: FDA-Public Use
  Company Number: JP-PFIZER INC-2013370806

PATIENT
  Age: 38 Year
  Sex: Female
  Weight: 41 kg

DRUGS (11)
  1. REVATIO [Suspect]
     Indication: PULMONARY HYPERTENSION
     Dosage: 20 MG, 3X/DAY
     Dates: start: 20090528
  2. BONZOL [Concomitant]
     Dosage: UNK
     Route: 048
  3. IMURAN [Concomitant]
     Indication: SYSTEMIC LUPUS ERYTHEMATOSUS
     Dosage: UNK
     Route: 048
  4. WARFARIN [Concomitant]
     Route: 048
  5. DECADRON [Concomitant]
     Indication: SYSTEMIC LUPUS ERYTHEMATOSUS
     Dosage: UNK
     Route: 048
     Dates: end: 20110620
  6. OMEPRAZON [Concomitant]
     Indication: PROPHYLAXIS
     Route: 048
  7. URSO [Concomitant]
     Route: 048
  8. BARACLUDE [Concomitant]
     Route: 048
  9. HALCION [Concomitant]
     Route: 048
  10. DIDRONEL ^SUMITOMO^ [Concomitant]
     Indication: PROPHYLAXIS
     Route: 048
  11. TRACLEER [Concomitant]
     Indication: PULMONARY ARTERIAL HYPERTENSION
     Route: 048

REACTIONS (1)
  - Pulmonary hypertension [Recovering/Resolving]
